FAERS Safety Report 6312020-0 (Version None)
Quarter: 2009Q3

REPORT INFORMATION
  Report Type: 
  Country: None (occurrence: None)
  Receive Date: 20090817
  Receipt Date: 20090806
  Transmission Date: 20100115
  Serious: Yes (Hospitalization)
  Sender: FDA-Public Use
  Company Number: JP-AMGEN-US359837

PATIENT
  Age: 46 Year
  Sex: Female

DRUGS (3)
  1. ENBREL [Suspect]
     Indication: RHEUMATOID ARTHRITIS
     Dosage: UNSPECIFIED
     Route: 058
     Dates: end: 20090701
  2. ENBREL [Suspect]
     Dosage: UNSPECIFIED
     Route: 058
     Dates: start: 20090805
  3. RHEUMATREX [Suspect]

REACTIONS (4)
  - HYSTERECTOMY [None]
  - INTESTINAL OBSTRUCTION [None]
  - MUCOUS MEMBRANE DISORDER [None]
  - VAGINAL DISORDER [None]
